FAERS Safety Report 6080960-6 (Version None)
Quarter: 2009Q1

REPORT INFORMATION
  Report Type: 
  Country: None (occurrence: None)
  Receive Date: 20090217
  Receipt Date: 20090205
  Transmission Date: 20090719
  Serious: Yes (Hospitalization)
  Sender: FDA-Public Use
  Company Number: GB-B.I. PHARMACEUTICALS,INC./RIDGEFIELD-2009-UK-00089UK

PATIENT
  Age: 54 Year
  Sex: Male

DRUGS (4)
  1. VIRAMUNE [Suspect]
     Indication: HIV INFECTION
  2. TRUVADA [Concomitant]
  3. CIPROFLOXACIN [Concomitant]
     Indication: URINARY TRACT INFECTION
  4. TETRACYCLINE [Concomitant]
     Indication: URINARY TRACT INFECTION

REACTIONS (2)
  - BONE MARROW DISORDER [None]
  - HEPATOTOXICITY [None]
